FAERS Safety Report 16748271 (Version 3)
Quarter: 2020Q1

REPORT INFORMATION
  Report Type: Report from Study
  Country: US (occurrence: US)
  Receive Date: 20190827
  Receipt Date: 20200331
  Transmission Date: 20200409
  Serious: Yes (Life-Threatening, Hospitalization, Other)
  Sender: FDA-Public Use
  Company Number: US-BEH-2019106082

PATIENT
  Age: 68 Year
  Sex: Female
  Weight: 79.37 kg

DRUGS (10)
  1. HAEMATE P [Suspect]
     Active Substance: ANTIHEMOPHILIC FACTOR HUMAN
     Dosage: 3200 INTERNATIONAL UNIT, QD
     Route: 065
     Dates: start: 20181205, end: 20181208
  2. HAEMATE P [Suspect]
     Active Substance: ANTIHEMOPHILIC FACTOR HUMAN
     Dosage: 3200 INTERNATIONAL UNIT, QD
     Route: 065
     Dates: start: 20190521, end: 20190524
  3. HAEMATE P [Suspect]
     Active Substance: ANTIHEMOPHILIC FACTOR HUMAN
     Indication: VON WILLEBRAND^S DISEASE
     Dosage: 3200 INTERNATIONAL UNIT, QD
     Route: 065
     Dates: start: 20180821, end: 20180821
  4. HAEMATE P [Suspect]
     Active Substance: ANTIHEMOPHILIC FACTOR HUMAN
     Dosage: 3200 INTERNATIONAL UNIT, QD
     Route: 065
     Dates: start: 20180914, end: 20180917
  5. HAEMATE P [Suspect]
     Active Substance: ANTIHEMOPHILIC FACTOR HUMAN
     Dosage: 3200 INTERNATIONAL UNIT, QD
     Route: 065
     Dates: start: 20190521, end: 20190524
  6. DESMOPRESSIN (NC) [Suspect]
     Active Substance: DESMOPRESSIN
     Indication: VON WILLEBRAND^S DISEASE
     Dosage: UNK
     Route: 045
     Dates: start: 2010
  7. HAEMATE P [Suspect]
     Active Substance: ANTIHEMOPHILIC FACTOR HUMAN
     Indication: VON WILLEBRAND^S DISEASE
     Dosage: 3200 INTERNATIONAL UNIT, QD
     Route: 065
     Dates: start: 20180821, end: 20180821
  8. HAEMATE P [Suspect]
     Active Substance: ANTIHEMOPHILIC FACTOR HUMAN
     Dosage: 3200 INTERNATIONAL UNIT, QD
     Route: 065
     Dates: start: 20180914, end: 20180917
  9. HAEMATE P [Suspect]
     Active Substance: ANTIHEMOPHILIC FACTOR HUMAN
     Dosage: 3200 INTERNATIONAL UNIT, QD
     Route: 065
     Dates: start: 20181205, end: 20181208
  10. FEMARA [Concomitant]
     Active Substance: LETROZOLE
     Indication: BREAST CANCER

REACTIONS (5)
  - Haematoma [Unknown]
  - Road traffic accident [Unknown]
  - Papillary thyroid cancer [Recovering/Resolving]
  - Accident [Unknown]
  - Eye haemorrhage [Unknown]

NARRATIVE: CASE EVENT DATE: 2019
